FAERS Safety Report 9445121 (Version 1)
Quarter: 2013Q3

REPORT INFORMATION
  Report Type: Spontaneous
  Country: CO (occurrence: CO)
  Receive Date: 20130807
  Receipt Date: 20130807
  Transmission Date: 20140515
  Serious: Yes (Other)
  Sender: FDA-Public Use
  Company Number: CO-JNJFOC-20130713978

PATIENT
  Age: 8 Year
  Sex: Male
  Weight: 49 kg

DRUGS (5)
  1. RISPERDAL [Suspect]
     Indication: AUTISM
     Route: 048
  2. RISPERDAL [Suspect]
     Indication: AUTISM
     Route: 048
  3. RISPERDAL [Suspect]
     Indication: AUTISM
     Route: 048
     Dates: start: 200909, end: 20130720
  4. ARIPIPRAZOLE [Concomitant]
     Indication: AGGRESSION
     Route: 048
     Dates: start: 201305
  5. ARIPIPRAZOLE [Concomitant]
     Indication: PSYCHOMOTOR HYPERACTIVITY
     Route: 048
     Dates: start: 201305

REACTIONS (4)
  - Aggression [Unknown]
  - Weight increased [Unknown]
  - Drug dose omission [Unknown]
  - Stereotypy [Unknown]
